FAERS Safety Report 9972302 (Version 3)
Quarter: 2014Q3

REPORT INFORMATION
  Report Type: Spontaneous
  Country: SK (occurrence: None)
  Receive Date: 20140304
  Receipt Date: 20140820
  Transmission Date: 20150326
  Serious: Yes (Hospitalization, Other)
  Sender: FDA-Public Use
  Company Number: 2014MPI00134

PATIENT
  Age: 46 Year
  Sex: Male
  Weight: 97 kg

DRUGS (5)
  1. CEFUROXIM/ZINNAT (CEFUROXIME AXETIL) [Concomitant]
  2. ADCETRIS [Suspect]
     Active Substance: BRENTUXIMAB VEDOTIN
     Indication: HODGKIN^S DISEASE
     Dosage: 180 MG, Q21D, INTRAVENOUS?
     Route: 042
     Dates: start: 20140205, end: 20140215
  3. ESPUMISAN/SILICONUM (DIMETICONE) [Concomitant]
  4. OMEPRAZOL/HELICID (OMEPRAZOLE) [Concomitant]
  5. DUPHALAC/LACTULOSA (LACTULOSE) [Concomitant]

REACTIONS (5)
  - Blood glucose increased [None]
  - Gamma-glutamyltransferase increased [None]
  - Blood cholesterol increased [None]
  - Aspartate aminotransferase increased [None]
  - Alanine aminotransferase increased [None]

NARRATIVE: CASE EVENT DATE: 20140214
